FAERS Safety Report 8499492-0 (Version None)
Quarter: 2012Q3

REPORT INFORMATION
  Report Type: 
  Country: None (occurrence: None)
  Receive Date: 20120710
  Receipt Date: 20120628
  Transmission Date: 20120928
  Serious: Yes (Hospitalization)
  Sender: FDA-Public Use
  Company Number: US-ELI_LILLY_AND_COMPANY-US201205006086

PATIENT
  Sex: Female

DRUGS (27)
  1. PROLIA [Concomitant]
  2. LOSARTAN POTASSIUM [Concomitant]
     Dosage: UNK
  3. LOPERAMIDE [Concomitant]
     Dosage: UNK
  4. CELEBREX [Concomitant]
     Dosage: UNK
  5. POTASSIUM CHLORIDE [Concomitant]
     Dosage: UNK
  6. ASPIRIN [Concomitant]
     Dosage: UNK
  7. CITRACAL + D [Concomitant]
     Dosage: UNK
  8. VITAMIN D [Concomitant]
     Dosage: UNK
  9. ASCORBIC ACID [Concomitant]
     Dosage: UNK
  10. ZOFRAN [Concomitant]
     Dosage: UNK
  11. TORSEMIDE [Concomitant]
     Dosage: UNK
  12. MAXZIDE [Concomitant]
     Dosage: UNK
  13. VYTORIN [Concomitant]
     Dosage: UNK
  14. MAGNESIUM SULFATE [Concomitant]
     Dosage: UNK
  15. COENZYME Q10 [Concomitant]
     Dosage: UNK
  16. HYDROCODONE [Concomitant]
     Dosage: UNK
  17. PEPCID COMPLETE [Concomitant]
     Dosage: UNK
  18. FISH OIL [Concomitant]
     Dosage: UNK
  19. FORTEO [Suspect]
     Indication: OSTEOPOROSIS
     Dosage: 20 UG, QD
  20. OMEPRAZOLE [Concomitant]
     Dosage: UNK
  21. FIBERCON [Concomitant]
     Dosage: UNK
  22. ADVIL PM                           /05810501/ [Concomitant]
     Dosage: UNK
  23. BENADRYL [Concomitant]
     Dosage: UNK
  24. MUCINEX DM [Concomitant]
     Dosage: UNK
  25. COUGH SYRUP WITH CODEINE [Concomitant]
     Dosage: UNK
  26. MULTI-VITAMINS [Concomitant]
     Dosage: UNK
  27. PEPTO BISMOL                       /00139305/ [Concomitant]
     Dosage: UNK

REACTIONS (19)
  - CENTRAL OBESITY [None]
  - BUNION OPERATION [None]
  - SUCROSE INTOLERANCE [None]
  - NERVE COMPRESSION [None]
  - BACK PAIN [None]
  - JOINT CREPITATION [None]
  - JOINT RANGE OF MOTION DECREASED [None]
  - VOMITING [None]
  - CERVICAL SPINAL STENOSIS [None]
  - SCIATICA [None]
  - MUSCULOSKELETAL PAIN [None]
  - INCORRECT DRUG ADMINISTRATION DURATION [None]
  - NAUSEA [None]
  - FALL [None]
  - ROTATOR CUFF SYNDROME [None]
  - SPINAL FUSION SURGERY [None]
  - JOINT INJURY [None]
  - FEELING ABNORMAL [None]
  - DIARRHOEA [None]
